FAERS Safety Report 14671866 (Version 4)
Quarter: 2019Q2

REPORT INFORMATION
  Report Type: Spontaneous
  Country: FR (occurrence: FR)
  Receive Date: 20180323
  Receipt Date: 20190613
  Transmission Date: 20190711
  Serious: Yes (Hospitalization, Other)
  Sender: FDA-Public Use
  Company Number: FR-MERCK KGAA-2044368

PATIENT
  Age: 47 Year
  Sex: Female

DRUGS (10)
  1. EUTHYROX [Suspect]
     Active Substance: LEVOTHYROXINE SODIUM
     Dates: start: 20170903, end: 20170910
  2. SYMBICORT [Concomitant]
     Active Substance: BUDESONIDE\FORMOTEROL FUMARATE DIHYDRATE
  3. TIORFANOR [Concomitant]
     Active Substance: RACECADOTRIL
  4. AERIUS [Concomitant]
  5. EUTHYROX [Suspect]
     Active Substance: LEVOTHYROXINE SODIUM
     Indication: HYPOTHYROIDISM
     Dates: start: 20170405, end: 2017
  6. MIRENA [Concomitant]
     Active Substance: LEVONORGESTREL
     Route: 015
  7. VOGALENE [Concomitant]
     Active Substance: METOPIMAZINE
  8. PARACETAMOL [Concomitant]
     Active Substance: ACETAMINOPHEN
  9. COLLUDOL [Concomitant]
  10. OMEPRAZOLE. [Concomitant]
     Active Substance: OMEPRAZOLE
     Dates: start: 200905

REACTIONS (36)
  - Intervertebral disc degeneration [None]
  - Migraine [Recovered/Resolved]
  - Social avoidant behaviour [None]
  - Alopecia [Not Recovered/Not Resolved]
  - Oedema [None]
  - Dizziness [None]
  - Back pain [None]
  - Palpitations [Recovered/Resolved]
  - Vomiting [Recovered/Resolved]
  - Myalgia [Not Recovered/Not Resolved]
  - Pain [None]
  - Neck pain [None]
  - Headache [Recovering/Resolving]
  - Asthenia [None]
  - Reaction to excipient [None]
  - Constipation [None]
  - Cervical radiculopathy [None]
  - Tinnitus [Recovered/Resolved]
  - Bradycardia [None]
  - Irritability [None]
  - Eye disorder [Not Recovered/Not Resolved]
  - Disturbance in attention [None]
  - Muscle spasms [None]
  - Vertigo [Not Recovered/Not Resolved]
  - Dyspnoea exertional [Not Recovered/Not Resolved]
  - Fatigue [Not Recovered/Not Resolved]
  - Fatigue [Recovering/Resolving]
  - Swelling face [Not Recovered/Not Resolved]
  - Weight increased [Not Recovered/Not Resolved]
  - Arthralgia [Not Recovered/Not Resolved]
  - Insomnia [Not Recovered/Not Resolved]
  - Thyroid mass [None]
  - Abdominal pain [None]
  - Malaise [None]
  - Loss of personal independence in daily activities [None]
  - Apathy [None]

NARRATIVE: CASE EVENT DATE: 2017
